FAERS Safety Report 5072326-2 (Version None)
Quarter: 2006Q3

REPORT INFORMATION
  Report Type: 
  Country: None (occurrence: None)
  Receive Date: 20060801
  Receipt Date: 20060724
  Transmission Date: 20061208
  Serious: Yes (Hospitalization)
  Sender: FDA-Public Use
  Company Number: 2006BI010393

PATIENT
  Age: 29 Year
  Sex: Female
  Weight: 138.3471 kg

DRUGS (3)
  1. AVONEX [Suspect]
     Indication: MULTIPLE SCLEROSIS
     Dosage: 30 UG;QW;IM
     Route: 030
     Dates: start: 20041101
  2. ENALAPRIL MALEATE [Concomitant]
  3. LASIX [Concomitant]

REACTIONS (2)
  - CHOLELITHIASIS [None]
  - COLITIS [None]
